FAERS Safety Report 9147742 (Version 1)
Quarter: 2013Q1

REPORT INFORMATION
  Report Type: Spontaneous
  Country: US (occurrence: US)
  Receive Date: 20130307
  Receipt Date: 20130307
  Transmission Date: 20140127
  Serious: Yes (Hospitalization)
  Sender: FDA-Public Use
  Company Number: US-009507513-1303USA001885

PATIENT
  Age: 47 Year
  Sex: Female

DRUGS (6)
  1. MONTELUKAST SODIUM [Suspect]
     Indication: ASTHMA
     Route: 048
  2. LEVOTHYROXINE SODIUM [Concomitant]
     Indication: PRODUCT USED FOR UNKNOWN INDICATION
     Route: 048
  3. AMLODIPINE BESYLATE [Concomitant]
     Indication: HYPERTENSION
     Route: 048
  4. RABEPRAZOLE SODIUM [Concomitant]
     Indication: HYPOTHYROIDISM
     Route: 048
  5. COKENZEN [Concomitant]
     Route: 048
  6. FENOFIBRATE [Concomitant]
     Route: 048

REACTIONS (13)
  - Tooth infection [Unknown]
  - Staphylococcal infection [Unknown]
  - Rash papular [Unknown]
  - Pyrexia [Unknown]
  - Lymphoedema [Unknown]
  - Jaundice [Unknown]
  - Hepatic steatosis [Unknown]
  - Haemolytic anaemia [Unknown]
  - Haematuria [Unknown]
  - Dyspnoea exertional [Unknown]
  - Diarrhoea [Unknown]
  - Asthenia [Unknown]
  - Abdominal pain upper [Unknown]
